FAERS Safety Report 15632139 (Version 1)
Quarter: 2018Q4

REPORT INFORMATION
  Report Type: Spontaneous
  Country: US (occurrence: US)
  Receive Date: 20181113
  Receipt Date: 20181113
  Transmission Date: 20190205
  Serious: Yes (Death)
  Sender: FDA-Public Use
  Company Number: None

PATIENT
  Age: 74 Year
  Sex: Female

DRUGS (3)
  1. FLUCONAZOLE TAB 100 MG [Concomitant]
     Dates: start: 20180701, end: 20180715
  2. XOLAIR [Suspect]
     Active Substance: OMALIZUMAB
     Indication: ASTHMA
     Dosage: ?          OTHER FREQUENCY:EVERY 2 WEEKS;?
     Route: 058
     Dates: start: 20180702, end: 20180723
  3. CLOTRIMAZOLE LOZ 10 MG [Concomitant]
     Dates: start: 20180701, end: 20180708

REACTIONS (1)
  - Death [None]

NARRATIVE: CASE EVENT DATE: 20180907
